FAERS Safety Report 17468619 (Version 1)
Quarter: 2020Q1

REPORT INFORMATION
  Report Type: Spontaneous
  Country: CN (occurrence: CN)
  Receive Date: 20200227
  Receipt Date: 20200227
  Transmission Date: 20200409
  Serious: Yes (Other)
  Sender: FDA-Public Use
  Company Number: CN-GLAXOSMITHKLINE-CN2020GSK035743

PATIENT
  Age: 47 Year
  Sex: Female

DRUGS (3)
  1. TENOFOVIR DISOPROXIL FUMARATE. [Suspect]
     Active Substance: TENOFOVIR DISOPROXIL FUMARATE
     Indication: HIV INFECTION
     Dosage: UNK
     Route: 065
     Dates: start: 201709
  2. DOLUTEGRAVIR [Suspect]
     Active Substance: DOLUTEGRAVIR
     Indication: HIV INFECTION
     Dosage: UNK
     Dates: start: 201709
  3. LAMIVUDINE. [Suspect]
     Active Substance: LAMIVUDINE
     Indication: HIV INFECTION
     Dosage: UNK
     Dates: start: 201709

REACTIONS (13)
  - Eosinophilic pustular folliculitis [Recovered/Resolved with Sequelae]
  - Skin plaque [Recovered/Resolved with Sequelae]
  - Rash papular [Recovered/Resolved]
  - Skin oedema [Recovered/Resolved]
  - Skin lesion [Recovered/Resolved with Sequelae]
  - Interleukin level increased [Recovered/Resolved]
  - Immune reconstitution inflammatory syndrome [Recovered/Resolved with Sequelae]
  - Pyrexia [Recovered/Resolved]
  - Eosinophilia [Recovered/Resolved]
  - Papule [Recovered/Resolved]
  - Acute febrile neutrophilic dermatosis [Recovered/Resolved with Sequelae]
  - Lymphocytic infiltration [Recovered/Resolved]
  - C-reactive protein increased [Recovered/Resolved]

NARRATIVE: CASE EVENT DATE: 2017
